FAERS Safety Report 5840292-5 (Version None)
Quarter: 2008Q3

REPORT INFORMATION
  Report Type: 
  Country: None (occurrence: None)
  Receive Date: 20080730
  Receipt Date: 20080430
  Transmission Date: 20090109
  Serious: No
  Sender: FDA-Public Use
  Company Number: PHEH2008US04236

PATIENT
  Sex: Male
  Weight: 87.1 kg

DRUGS (1)
  1. TEKTURNA [Suspect]
     Dosage: 150/12.5MG QD, ORAL
     Route: 048
     Dates: start: 20080404, end: 20080424

REACTIONS (3)
  - ANXIETY [None]
  - COORDINATION ABNORMAL [None]
  - TREMOR [None]
